FAERS Safety Report 9200223 (Version 3)
Quarter: 2013Q3

REPORT INFORMATION
  Report Type: Spontaneous
  Country: JP (occurrence: JP)
  Receive Date: 20130329
  Receipt Date: 20130821
  Transmission Date: 20140515
  Serious: Yes (Hospitalization)
  Sender: FDA-Public Use
  Company Number: JP-BRISTOL-MYERS SQUIBB COMPANY-18719229

PATIENT
  Age: 72 Year
  Sex: Female
  Weight: 35 kg

DRUGS (4)
  1. ERBITUX SOLN FOR INF 5MG/ML [Suspect]
     Indication: BONE CANCER
     Dosage: 520MG-14-14JAN13?325MG-21JAN13-15MAR13-1N1WK
     Route: 041
     Dates: start: 20130114, end: 20130315
  2. TS-1 [Suspect]
     Indication: BONE CANCER
     Dosage: CAP
     Route: 048
     Dates: start: 20130114, end: 20130127
  3. MINOMYCIN [Suspect]
     Indication: PROPHYLAXIS
     Route: 048
     Dates: start: 20130114, end: 20130314
  4. MINOMYCIN [Suspect]
     Indication: SKIN REACTION
     Route: 048
     Dates: start: 20130114, end: 20130314

REACTIONS (3)
  - Stevens-Johnson syndrome [Recovering/Resolving]
  - Platelet count decreased [Recovered/Resolved]
  - Nausea [Recovered/Resolved]
